FAERS Safety Report 7403320-1 (Version None)
Quarter: 2011Q2

REPORT INFORMATION
  Report Type: 
  Country: None (occurrence: None)
  Receive Date: 20110408
  Receipt Date: 20110315
  Transmission Date: 20111010
  Serious: No
  Sender: FDA-Public Use
  Company Number: US-B.I. PHARMACEUTICALS,INC./RIDGEFIELD-2011-BP-08287BP

PATIENT
  Sex: Female

DRUGS (11)
  1. ALLOPURINOL [Concomitant]
     Indication: HYPERTENSION
     Dosage: 300 MG
  2. KLOR-CON [Concomitant]
     Indication: BLOOD CHOLESTEROL INCREASED
     Dosage: 20 MG
  3. DILTIAZEM [Concomitant]
     Dosage: 60 MG
  4. FUROSEMIDE [Concomitant]
     Dosage: 80 MG
  5. SINGULAIR [Concomitant]
     Indication: MULTIPLE ALLERGIES
     Dosage: 10 MG
  6. COLCHICINE [Concomitant]
     Indication: GOUT
     Dosage: 0.6 MG
  7. QUINAPRIL [Concomitant]
     Indication: HYPERTENSION
     Dosage: 40 MG
  8. BONIVA [Concomitant]
     Indication: PROPHYLAXIS
  9. METOPROLOL [Concomitant]
     Indication: ATRIAL FIBRILLATION
     Dosage: 100 MG
  10. PAXIL [Concomitant]
     Dosage: 12.5 MG
  11. PRADAXA [Suspect]
     Indication: ATRIAL FIBRILLATION
     Dosage: 300 MG
     Route: 048
     Dates: start: 20110310

REACTIONS (1)
  - FLATULENCE [None]
